FAERS Safety Report 12567673 (Version 1)
Quarter: 2016Q3

REPORT INFORMATION
  Report Type: Spontaneous
  Country: US (occurrence: US)
  Receive Date: 20160718
  Receipt Date: 20160718
  Transmission Date: 20161109
  Serious: No
  Sender: FDA-Public Use
  Company Number: US-ASTELLAS-2016US003270

PATIENT
  Age: 84 Year
  Sex: Female

DRUGS (3)
  1. RYTHMOL [Interacting]
     Active Substance: PROPAFENONE HYDROCHLORIDE
     Indication: ATRIAL FIBRILLATION
     Dosage: 225 MG, TWICE DAILY FOR AT LEAST 7 OR 8 YEARS
     Route: 065
  2. MYRBETRIQ [Suspect]
     Active Substance: MIRABEGRON
     Indication: URINARY INCONTINENCE
     Dosage: UNK UNK, UNKNOWN FREQUENCY (01 YEAR AGO)
     Route: 065
  3. MYRBETRIQ [Interacting]
     Active Substance: MIRABEGRON
     Route: 065

REACTIONS (2)
  - Drug ineffective [Unknown]
  - Drug interaction [Unknown]
